FAERS Safety Report 19890959 (Version 1)
Quarter: 2021Q3

REPORT INFORMATION
  Report Type: Spontaneous
  Country: DE (occurrence: DE)
  Receive Date: 20210928
  Receipt Date: 20210928
  Transmission Date: 20211014
  Serious: Yes (Other)
  Sender: FDA-Public Use
  Company Number: NVSC2021DE218437

PATIENT
  Sex: Female

DRUGS (4)
  1. CARBOPLATIN. [Suspect]
     Active Substance: CARBOPLATIN
     Dosage: UNK
     Route: 042
     Dates: start: 202106
  2. CARBOPLATIN. [Suspect]
     Active Substance: CARBOPLATIN
     Indication: OVARIAN CANCER
     Dosage: UNK
     Route: 065
     Dates: start: 2021
  3. PACLITAXEL. [Suspect]
     Active Substance: PACLITAXEL
     Indication: OVARIAN CANCER
     Dosage: UNK (ERSTE DREI INFUSIONEN)
     Route: 065
     Dates: start: 2021
  4. PACLITAXEL. [Suspect]
     Active Substance: PACLITAXEL
     Dosage: UNK
     Route: 042
     Dates: start: 202106

REACTIONS (6)
  - Adverse reaction [Unknown]
  - Dyspnoea at rest [Unknown]
  - General physical health deterioration [Unknown]
  - Visual impairment [Unknown]
  - Headache [Unknown]
  - Extrasystoles [Unknown]

NARRATIVE: CASE EVENT DATE: 2021
